FAERS Safety Report 24567202 (Version 4)
Quarter: 2025Q1

REPORT INFORMATION
  Report Type: Spontaneous
  Country: JP (occurrence: JP)
  Receive Date: 20241030
  Receipt Date: 20250314
  Transmission Date: 20250409
  Serious: Yes (Death)
  Sender: JAZZ
  Company Number: JP-JAZZ PHARMACEUTICALS-2024-JP-019730

PATIENT
  Age: 2 Year
  Sex: Female

DRUGS (1)
  1. DEFITELIO [Suspect]
     Active Substance: DEFIBROTIDE SODIUM
     Indication: Venoocclusive liver disease
     Route: 042
     Dates: start: 20221204, end: 20230206

REACTIONS (3)
  - Neuroblastoma recurrent [Fatal]
  - Multiple organ dysfunction syndrome [Fatal]
  - Anaemia [Unknown]

NARRATIVE: CASE EVENT DATE: 20230130
